FAERS Safety Report 10499169 (Version 1)
Quarter: 2014Q4

REPORT INFORMATION
  Report Type: Spontaneous
  Country: US (occurrence: US)
  Receive Date: 20141006
  Receipt Date: 20141006
  Transmission Date: 20150528
  Serious: No
  Sender: FDA-Public Use
  Company Number: US-AMGEN INC.-USASP2014026206

PATIENT

DRUGS (2)
  1. XGEVA [Suspect]
     Active Substance: DENOSUMAB
     Indication: PRODUCT USED FOR UNKNOWN INDICATION
     Route: 065
  2. TRAMADOL [Concomitant]
     Active Substance: TRAMADOL
     Indication: PAIN

REACTIONS (5)
  - Acne cystic [Recovered/Resolved]
  - Pain [Unknown]
  - Feeling abnormal [Not Recovered/Not Resolved]
  - Tooth disorder [Unknown]
  - Tooth fracture [Unknown]
